FAERS Safety Report 6530011-1 (Version None)
Quarter: 2010Q1

REPORT INFORMATION
  Report Type: 
  Country: None (occurrence: None)
  Receive Date: 20100107
  Receipt Date: 20091229
  Transmission Date: 20100710
  Serious: Yes (Hospitalization)
  Sender: FDA-Public Use
  Company Number: GXKR2009AU13912

PATIENT
  Age: 70 Year
  Sex: Female

DRUGS (10)
  1. PACLITAXEL (NGX) [Suspect]
     Indication: NON-SMALL CELL LUNG CANCER STAGE IV
     Dosage: UNK
     Route: 065
     Dates: start: 20071101
  2. CARBOPLATIN (NGX) [Suspect]
     Indication: NON-SMALL CELL LUNG CANCER STAGE IV
     Dosage: UNK
     Route: 065
     Dates: start: 20071101
  3. BEVACIZUMAB [Suspect]
     Indication: NON-SMALL CELL LUNG CANCER STAGE IV
     Dosage: 15 MG/KG, TIW
     Route: 042
     Dates: start: 20071101
  4. ANTI-TUMOR NECROSIS FACTOR MONOCLON. ANTIBODY [Suspect]
     Dosage: UNK
     Route: 065
     Dates: start: 20071101
  5. PERINDOPRIL ERBUMINE [Concomitant]
     Indication: HYPERTENSION
     Dosage: UNK
     Route: 065
     Dates: start: 20050101
  6. CARBAMAZEPINE [Concomitant]
     Route: 065
  7. FELODIPINE [Concomitant]
     Route: 065
  8. OMEPRAZOLE [Concomitant]
     Route: 065
  9. LEVOTHYROXINE SODIUM [Concomitant]
     Route: 065
  10. ALBUTEROL [Concomitant]

REACTIONS (8)
  - BLADDER CATHETERISATION [None]
  - NECK PAIN [None]
  - PAIN [None]
  - PARAESTHESIA [None]
  - QUADRIPARESIS [None]
  - SPINAL CORD INFARCTION [None]
  - SPINAL CORD OEDEMA [None]
  - WALKING AID USER [None]
